FAERS Safety Report 6759920-5 (Version None)
Quarter: 2010Q2

REPORT INFORMATION
  Report Type: 
  Country: None (occurrence: None)
  Receive Date: 20100608
  Receipt Date: 20100602
  Transmission Date: 20101027
  Serious: Yes (Hospitalization, Other)
  Sender: FDA-Public Use
  Company Number: US-ELI_LILLY_AND_COMPANY-US201006000926

PATIENT
  Sex: Female

DRUGS (5)
  1. HUMULIN 70/30 [Suspect]
     Dosage: 30 U, EACH MORNING
  2. HUMULIN 70/30 [Suspect]
     Dosage: 15 U, EACH EVENING
  3. METFORMIN HCL [Concomitant]
  4. METAMUCIL-2 [Concomitant]
  5. INSULIN [Concomitant]

REACTIONS (14)
  - ARTHRITIS [None]
  - BLOOD CHOLESTEROL INCREASED [None]
  - BLOOD GLUCOSE INCREASED [None]
  - CHRONIC OBSTRUCTIVE PULMONARY DISEASE [None]
  - CONSTIPATION [None]
  - CRYING [None]
  - DEPRESSION [None]
  - DRUG DOSE OMISSION [None]
  - FEAR OF NEEDLES [None]
  - HYPERTENSION [None]
  - LOSS OF CONSCIOUSNESS [None]
  - POOR QUALITY DRUG ADMINISTERED [None]
  - PRODUCT QUALITY ISSUE [None]
  - THROMBOSIS [None]
